FAERS Safety Report 4307773-7 (Version None)
Quarter: 2004Q1

REPORT INFORMATION
  Report Type: 
  Country: None (occurrence: None)
  Receive Date: 20040225
  Receipt Date: 20030318
  Transmission Date: 20041129
  Serious: Yes (Other)
  Sender: FDA-Public Use
  Company Number: WAES 0303USA01838

PATIENT
  Age: 62 Year
  Sex: Female
  Weight: 68.0396 kg

DRUGS (6)
  1. ZOCOR [Suspect]
     Indication: LIPIDS INCREASED
     Dosage: PO
     Route: 048
     Dates: start: 20020613, end: 20030303
  2. ADVIL [Concomitant]
  3. MOTRIN [Concomitant]
  4. TOPROL-XL [Concomitant]
  5. ACETAMINOPHEN [Concomitant]
  6. ASPIRIN [Concomitant]

REACTIONS (2)
  - MEDICATION ERROR [None]
  - RHABDOMYOLYSIS [None]
